FAERS Safety Report 6274064-7 (Version None)
Quarter: 2009Q3

REPORT INFORMATION
  Report Type: 
  Country: None (occurrence: None)
  Receive Date: 20090716
  Receipt Date: 20090701
  Transmission Date: 20100115
  Serious: Yes (Death, Hospitalization)
  Sender: FDA-Public Use
  Company Number: 001215

PATIENT
  Age: 71 Year
  Sex: Male

DRUGS (1)
  1. NITROGLYCERIN [Suspect]
     Dosage: (TRANSDERMAL)
     Route: 062

REACTIONS (8)
  - CARDIOGENIC SHOCK [None]
  - HAEMOGLOBIN DECREASED [None]
  - HYPOTENSION [None]
  - MULTI-ORGAN FAILURE [None]
  - MYOCARDIAL INFARCTION [None]
  - SEPSIS [None]
  - SHOCK HAEMORRHAGIC [None]
  - SYNCOPE [None]
